FAERS Safety Report 11643983 (Version 1)
Quarter: 2015Q4

REPORT INFORMATION
  Report Type: Spontaneous
  Country: US (occurrence: None)
  Receive Date: 20151019
  Receipt Date: 20151019
  Transmission Date: 20160304
  Serious: No
  Sender: FDA-Public Use
  Company Number: None

PATIENT
  Age: 51 Year
  Sex: Female
  Weight: 61.24 kg

DRUGS (3)
  1. LEVAQUIN [Suspect]
     Active Substance: LEVOFLOXACIN
     Indication: KIDNEY INFECTION
     Route: 048
     Dates: start: 20150819, end: 20150823
  2. IRON PILL [Concomitant]
     Active Substance: IRON
  3. THYROID SUPPORT [Concomitant]
     Active Substance: CALCIUM IODIDE\CAUSTICUM\FERROUS IODIDE\FUCUS VESICULOSUS\OYSTER SHELL CALCIUM CARBONATE, CRUDE\POTASSIUM IODIDE\SODIUM CHLORIDE\THYROID

REACTIONS (4)
  - Arthralgia [None]
  - Gait disturbance [None]
  - Joint swelling [None]
  - Decreased activity [None]

NARRATIVE: CASE EVENT DATE: 20150821
